FAERS Safety Report 13026950 (Version 1)
Quarter: 2016Q4

REPORT INFORMATION
  Report Type: Spontaneous
  Country: FR (occurrence: FR)
  Receive Date: 20161214
  Receipt Date: 20161214
  Transmission Date: 20170207
  Serious: Yes (Hospitalization)
  Sender: FDA-Public Use
  Company Number: FR-PFIZER INC-2016567428

PATIENT
  Age: 56 Year
  Sex: Male

DRUGS (5)
  1. FLUOROURACILE ACCORD [Suspect]
     Active Substance: FLUOROURACIL
     Indication: ADENOCARCINOMA PANCREAS
     Dosage: 2670 MG, SINGLE ON DAY 1
     Route: 042
     Dates: start: 20150323, end: 20150323
  2. FLUOROURACILE ACCORD [Suspect]
     Active Substance: FLUOROURACIL
     Dosage: 2000 MG, SINGLE ON DAY 2
     Route: 042
     Dates: start: 20150324, end: 20150324
  3. IRINOTECAN HCL [Suspect]
     Active Substance: IRINOTECAN HYDROCHLORIDE
     Indication: ADENOCARCINOMA PANCREAS
     Dosage: 300 MG, SINGLE ON DAY 1
     Route: 042
     Dates: start: 20150323, end: 20150323
  4. FOLINIC ACID [Suspect]
     Active Substance: LEUCOVORIN
     Indication: ADENOCARCINOMA PANCREAS
     Dosage: 670 MG, SINGLE ON DAY 1
     Route: 042
     Dates: start: 20150323, end: 20150323
  5. OXALIPLATIN. [Suspect]
     Active Substance: OXALIPLATIN
     Indication: ADENOCARCINOMA PANCREAS
     Dosage: 140 MG, SINGLE ON DAY 1
     Route: 042
     Dates: start: 20150323, end: 20150323

REACTIONS (3)
  - Crohn^s disease [Recovered/Resolved]
  - Colitis [Recovered/Resolved]
  - Small intestinal obstruction [Recovered/Resolved]

NARRATIVE: CASE EVENT DATE: 20150407
